FAERS Safety Report 9887592 (Version 3)
Quarter: 2014Q2

REPORT INFORMATION
  Report Type: Spontaneous
  Country: FI (occurrence: FI)
  Receive Date: 20140211
  Receipt Date: 20140415
  Transmission Date: 20141212
  Serious: Yes (Death, Hospitalization, Other)
  Sender: FDA-Public Use
  Company Number: FI-CELGENEUS-055-POMAL-14020516

PATIENT
  Age: 70 Year
  Sex: Male
  Weight: 80 kg

DRUGS (16)
  1. IMNOVID [Suspect]
     Indication: PLASMA CELL MYELOMA
     Dosage: 4 MILLIGRAM
     Route: 048
     Dates: start: 20131125, end: 20131127
  2. IMNOVID [Suspect]
     Dosage: 4 MILLIGRAM
     Route: 048
     Dates: start: 20131204, end: 20131212
  3. DEXAMETHASONE [Concomitant]
     Indication: PLASMA CELL MYELOMA
     Route: 065
     Dates: start: 20131125
  4. DEXAMETHASONE [Concomitant]
     Route: 065
     Dates: start: 201009
  5. DEXAMETHASONE [Concomitant]
     Route: 065
     Dates: start: 201212
  6. SOMAC [Concomitant]
     Indication: PRODUCT USED FOR UNKNOWN INDICATION
     Route: 065
     Dates: start: 20130916
  7. MAREVAN FORTE [Concomitant]
     Indication: PRODUCT USED FOR UNKNOWN INDICATION
     Route: 065
     Dates: start: 20131111
  8. BONEFOS [Concomitant]
     Indication: PRODUCT USED FOR UNKNOWN INDICATION
     Route: 065
     Dates: start: 20130422
  9. MOVICOL [Concomitant]
     Indication: PRODUCT USED FOR UNKNOWN INDICATION
     Route: 065
     Dates: start: 20130625
  10. OXYNORM [Concomitant]
     Indication: PRODUCT USED FOR UNKNOWN INDICATION
     Route: 065
     Dates: start: 20130422
  11. REDOL COMP [Concomitant]
     Indication: PRODUCT USED FOR UNKNOWN INDICATION
     Route: 065
     Dates: start: 20131125
  12. CEFTRIAXONE [Concomitant]
     Indication: PRODUCT USED FOR UNKNOWN INDICATION
     Route: 041
  13. OXYCONTIN [Concomitant]
     Indication: PAIN
     Route: 041
  14. OXYCONTIN [Concomitant]
     Route: 041
     Dates: end: 20140115
  15. ZOMETA [Concomitant]
     Indication: PRODUCT USED FOR UNKNOWN INDICATION
     Route: 041
  16. OXANEST [Concomitant]
     Indication: PRODUCT USED FOR UNKNOWN INDICATION
     Dosage: 3MG/H
     Route: 041
     Dates: start: 20140115

REACTIONS (11)
  - Cardiac failure [Fatal]
  - Plasma cell myeloma [Fatal]
  - Infection [Recovered/Resolved]
  - Back pain [Recovered/Resolved]
  - Pyrexia [Recovered/Resolved]
  - Neutropenia [Unknown]
  - Thrombocytopenia [Unknown]
  - Epistaxis [Unknown]
  - Diplopia [Unknown]
  - Visual field defect [Unknown]
  - Pain [Unknown]
